FAERS Safety Report 9250852 (Version 1)
Quarter: 2013Q2

REPORT INFORMATION
  Report Type: Report from Study
  Country: US (occurrence: US)
  Receive Date: 20130424
  Receipt Date: 20130424
  Transmission Date: 20140414
  Serious: Yes (Other)
  Sender: FDA-Public Use
  Company Number: PHEH2013US008709

PATIENT
  Sex: Female

DRUGS (5)
  1. GILENYA [Suspect]
     Dosage: 0.5 MG, QD
     Route: 048
  2. SANCTURA [Concomitant]
     Dosage: 60 MG, UNK
     Route: 048
  3. PRILOSEC [Concomitant]
     Dosage: 10 MG, UNK
     Route: 048
  4. FIBER [Concomitant]
     Route: 048
  5. VITAMIIN C [Concomitant]
     Dosage: 100 MG, UNK
     Route: 048

REACTIONS (1)
  - Epistaxis [Unknown]
